FAERS Safety Report 17571019 (Version 1)
Quarter: 2020Q1

REPORT INFORMATION
  Report Type: Spontaneous
  Country: CA (occurrence: CA)
  Receive Date: 20200323
  Receipt Date: 20200323
  Transmission Date: 20200409
  Serious: Yes (Other)
  Sender: FDA-Public Use
  Company Number: CA-TEVA-2020-CA-1207687

PATIENT
  Age: 55 Year
  Sex: Female
  Weight: 70.37 kg

DRUGS (3)
  1. HYDROMORPHONE [Concomitant]
     Active Substance: HYDROMORPHONE
  2. ZOPICLONE [Concomitant]
     Active Substance: ZOPICLONE
  3. COPAXONE [Suspect]
     Active Substance: GLATIRAMER ACETATE
     Indication: RELAPSING-REMITTING MULTIPLE SCLEROSIS
     Dosage: 20 MILLIGRAM DAILY;
     Route: 058

REACTIONS (5)
  - Hydronephrosis [Unknown]
  - Pyeloplasty [Unknown]
  - Stent placement [Unknown]
  - Renal impairment [Unknown]
  - Ureteric stenosis [Unknown]
